FAERS Safety Report 8401787-3 (Version None)
Quarter: 2012Q2

REPORT INFORMATION
  Report Type: 
  Country: None (occurrence: None)
  Receive Date: 20120529
  Receipt Date: 20090629
  Transmission Date: 20120825
  Serious: Yes (Other)
  Sender: FDA-Public Use
  Company Number: 005335

PATIENT

DRUGS (2)
  1. ASPIRIN [Suspect]
     Dosage: ORAL
     Route: 048
  2. PLETAL [Suspect]
     Dosage: ORAL
     Route: 048

REACTIONS (2)
  - ULCER HAEMORRHAGE [None]
  - PEPTIC ULCER [None]
